FAERS Safety Report 9319645 (Version 8)
Quarter: 2014Q2

REPORT INFORMATION
  Report Type: Spontaneous
  Country: US (occurrence: US)
  Receive Date: 20130530
  Receipt Date: 20140505
  Transmission Date: 20141212
  Serious: Yes (Hospitalization)
  Sender: FDA-Public Use
  Company Number: US-GLAXOSMITHKLINE-A1018752A

PATIENT
  Age: 70 Year
  Sex: Male

DRUGS (4)
  1. FLOLAN [Suspect]
     Indication: PULMONARY ARTERIAL HYPERTENSION
     Dosage: 40NGKM CONTINUOUS
     Route: 042
     Dates: start: 20100718
  2. ADHESIVE TAPE [Concomitant]
  3. TRACLEER [Concomitant]
  4. ADCIRCA [Concomitant]

REACTIONS (10)
  - Diarrhoea [Unknown]
  - Epistaxis [Unknown]
  - Application site erythema [Unknown]
  - Application site pruritus [Unknown]
  - Ear infection [Unknown]
  - Hypotension [Unknown]
  - Blood test abnormal [Unknown]
  - Infection [Unknown]
  - Platelet count decreased [Unknown]
  - Device infusion issue [Unknown]
